FAERS Safety Report 14205609 (Version 2)
Quarter: 2017Q4

REPORT INFORMATION
  Report Type: Spontaneous
  Country: AU (occurrence: AU)
  Receive Date: 20171120
  Receipt Date: 20171204
  Transmission Date: 20180321
  Serious: Yes (Hospitalization)
  Sender: FDA-Public Use
  Company Number: AU-ASTRAZENECA-2017SF16907

PATIENT
  Age: 77 Year
  Sex: Male

DRUGS (4)
  1. VORICONAZOLE. [Interacting]
     Active Substance: VORICONAZOLE
     Indication: KERATITIS FUNGAL
     Dosage: LOADING DOSE OF 400 MG/ TWICE DAILY  (5.48 MG/KG)
     Route: 048
  2. VORICONAZOLE. [Interacting]
     Active Substance: VORICONAZOLE
     Indication: KERATITIS FUNGAL
     Dosage: REDUCED DOSE 250 MG/ TWICE DAILY
     Route: 048
  3. ESOMEPRAZOLE [Suspect]
     Active Substance: ESOMEPRAZOLE
     Route: 048
  4. VORICONAZOLE. [Interacting]
     Active Substance: VORICONAZOLE
     Indication: KERATITIS FUNGAL
     Dosage: MAINTENANCE DOSE 300 MG/ TWICE DAILY  (4.11 MG/KG)
     Route: 048

REACTIONS (3)
  - Hyponatraemia [Recovered/Resolved]
  - Drug interaction [Recovered/Resolved]
  - Drug level increased [Recovered/Resolved]
